FAERS Safety Report 6070370-X (Version None)
Quarter: 2009Q1

REPORT INFORMATION
  Report Type: 
  Country: None (occurrence: None)
  Receive Date: 20090209
  Receipt Date: 20090129
  Transmission Date: 20090719
  Serious: Yes (Other)
  Sender: FDA-Public Use
  Company Number: CA-JNJFOC-20081104856

PATIENT
  Sex: Female
  Weight: 53.9 kg

DRUGS (10)
  1. REMICADE [Suspect]
     Route: 042
  2. REMICADE [Suspect]
     Route: 042
  3. REMICADE [Suspect]
     Indication: CROHN'S DISEASE
     Route: 042
  4. ATENOLOL [Concomitant]
  5. LIPITOR [Concomitant]
  6. NIFEDIPINE [Concomitant]
  7. ACTONEL [Concomitant]
  8. TRIMIPRAMINE MALEATE [Concomitant]
  9. ESTRACE [Concomitant]
  10. PROMETRIUM [Concomitant]

REACTIONS (2)
  - BLOOD TEST ABNORMAL [None]
  - ECZEMA [None]
